FAERS Safety Report 6119855-8 (Version None)
Quarter: 2009Q1

REPORT INFORMATION
  Report Type: 
  Country: None (occurrence: None)
  Receive Date: 20090311
  Receipt Date: 20090305
  Transmission Date: 20090719
  Serious: Yes (Life-Threatening, Hospitalization)
  Sender: FDA-Public Use
  Company Number: 2009-192738-NL

PATIENT
  Age: 37 Year
  Sex: Male

DRUGS (2)
  1. MIRTAZAPINE [Suspect]
     Indication: DEPRESSION
     Dosage: 30 MG ORAL
     Route: 048
     Dates: start: 20081030, end: 20090122
  2. CITALOPRAM HYDROBROMIDE [Concomitant]

REACTIONS (1)
  - SUBARACHNOID HAEMORRHAGE [None]
